FAERS Safety Report 15982615 (Version 3)
Quarter: 2020Q2

REPORT INFORMATION
  Report Type: Spontaneous
  Country: US (occurrence: US)
  Receive Date: 20190219
  Receipt Date: 20200520
  Transmission Date: 20200713
  Serious: Yes (Hospitalization)
  Sender: FDA-Public Use
  Company Number: US-PFIZER INC-2017281544

PATIENT
  Age: 76 Year
  Sex: Female
  Weight: 57.61 kg

DRUGS (1)
  1. PREMARIN [Suspect]
     Active Substance: ESTROGENS, CONJUGATED
     Indication: MENOPAUSAL SYMPTOMS
     Dosage: 1.25 MG, 1X/DAY (1 TABLET ONCE A DAY FOR 90 DAYS)
     Route: 048

REACTIONS (3)
  - Cerebrovascular accident [Unknown]
  - Intentional product misuse [Unknown]
  - Malaise [Unknown]
